FAERS Safety Report 10688845 (Version 2)
Quarter: 2015Q4

REPORT INFORMATION
  Report Type: Spontaneous
  Country: TR (occurrence: TR)
  Receive Date: 20150103
  Receipt Date: 20151127
  Transmission Date: 20160304
  Serious: Yes (Hospitalization)
  Sender: FDA-Public Use
  Company Number: TR-BRISTOL-MYERS SQUIBB COMPANY-BMS-2014-006556

PATIENT
  Age: 35 Year
  Sex: Female

DRUGS (3)
  1. SERTRALINE HCL [Interacting]
     Active Substance: SERTRALINE HYDROCHLORIDE
     Indication: OBSESSIVE-COMPULSIVE DISORDER
     Dosage: 200 MG, QD
     Route: 065
  2. FUROSEMIDE. [Concomitant]
     Active Substance: FUROSEMIDE
     Indication: PRODUCT USED FOR UNKNOWN INDICATION
     Route: 065
  3. ABILIFY [Suspect]
     Active Substance: ARIPIPRAZOLE
     Indication: OBSESSIVE-COMPULSIVE DISORDER
     Dosage: 10 MG, QD
     Route: 048

REACTIONS (10)
  - Nausea [Unknown]
  - Drug interaction [Unknown]
  - Dyspnoea [Unknown]
  - Akathisia [Unknown]
  - Off label use [Unknown]
  - Somnolence [Unknown]
  - Palpitations [Unknown]
  - Orthostatic hypotension [Unknown]
  - Non-cardiogenic pulmonary oedema [Recovered/Resolved]
  - Chest pain [Unknown]
